FAERS Safety Report 7283378-3 (Version None)
Quarter: 2011Q1

REPORT INFORMATION
  Report Type: 
  Country: None (occurrence: None)
  Receive Date: 20110209
  Receipt Date: 20100913
  Transmission Date: 20110831
  Serious: No
  Sender: FDA-Public Use
  Company Number: A0870632A

PATIENT
  Age: 40 Year
  Sex: Female

DRUGS (5)
  1. MUSCLE RELAXER [Concomitant]
  2. PAXIL [Suspect]
     Indication: DEPRESSION
     Dosage: 40MG PER DAY
     Route: 048
     Dates: start: 19980101, end: 20060101
  3. PAROXETINE HCL [Suspect]
     Route: 065
  4. ZYPREXA [Concomitant]
  5. MIGRAINE MEDICATION [Concomitant]

REACTIONS (5)
  - DIZZINESS [None]
  - HEADACHE [None]
  - LIBIDO DECREASED [None]
  - DRUG INEFFECTIVE [None]
  - FEMALE ORGASMIC DISORDER [None]
